FAERS Safety Report 21365110 (Version 3)
Quarter: 2023Q1

REPORT INFORMATION
  Report Type: Spontaneous
  Country: US (occurrence: US)
  Receive Date: 20220922
  Receipt Date: 20230314
  Transmission Date: 20230418
  Serious: No
  Sender: FDA-Public Use
  Company Number: US-PFIZER INC-PV202200067805

PATIENT
  Age: 63 Year
  Sex: Female
  Weight: 107 kg

DRUGS (1)
  1. XELJANZ XR [Suspect]
     Active Substance: TOFACITINIB CITRATE
     Indication: Rheumatoid arthritis
     Dosage: 11 MG, 1X/DAY
     Route: 048
     Dates: start: 202206, end: 20221223

REACTIONS (9)
  - Drug ineffective [Unknown]
  - Headache [Unknown]
  - Rhinorrhoea [Unknown]
  - Sluggishness [Unknown]
  - Malaise [Unknown]
  - Pain [Unknown]
  - Musculoskeletal stiffness [Unknown]
  - Fatigue [Unknown]
  - Product dose omission issue [Unknown]
